FAERS Safety Report 8401156-6 (Version None)
Quarter: 2012Q2

REPORT INFORMATION
  Report Type: 
  Country: None (occurrence: None)
  Receive Date: 20120601
  Receipt Date: 20120530
  Transmission Date: 20120825
  Serious: Yes (Other)
  Sender: FDA-Public Use
  Company Number: AT-BAYER-2011-079144

PATIENT
  Age: 39 Year
  Sex: Female
  Weight: 75 kg

DRUGS (1)
  1. MIRENA [Suspect]
     Indication: CONTRACEPTION
     Dosage: UNK
     Route: 015
     Dates: start: 20081020, end: 20110818

REACTIONS (3)
  - PLACENTA ACCRETA [None]
  - HAEMORRHAGE IN PREGNANCY [None]
  - PREGNANCY WITH CONTRACEPTIVE DEVICE [None]
